FAERS Safety Report 6585078-1 (Version None)
Quarter: 2010Q1

REPORT INFORMATION
  Report Type: 
  Country: None (occurrence: None)
  Receive Date: 20100217
  Receipt Date: 20100210
  Transmission Date: 20100710
  Serious: Yes (Disabling)
  Sender: FDA-Public Use
  Company Number: ES-ROCHE-679843

PATIENT
  Age: 63 Year
  Sex: Female

DRUGS (2)
  1. BONIVA [Suspect]
     Indication: DRUG USE FOR UNKNOWN INDICATION
     Route: 048
     Dates: start: 20091101, end: 20091201
  2. IBUPROFEN [Concomitant]
     Indication: ANTIINFLAMMATORY THERAPY
     Dosage: FREQUENCY: AD-LIBITUM
     Route: 048

REACTIONS (6)
  - CHEST PAIN [None]
  - GAIT DISTURBANCE [None]
  - MALAISE [None]
  - MUSCULOSKELETAL PAIN [None]
  - PRURITUS [None]
  - TACHYCARDIA [None]
